FAERS Safety Report 8380038-2 (Version None)
Quarter: 2012Q2

REPORT INFORMATION
  Report Type: 
  Country: None (occurrence: None)
  Receive Date: 20120523
  Receipt Date: 20120514
  Transmission Date: 20120825
  Serious: Yes (Hospitalization, Congenital Anomaly)
  Sender: FDA-Public Use
  Company Number: US-GLAXOSMITHKLINE-A0863283A

PATIENT
  Sex: Female
  Weight: 3 kg

DRUGS (4)
  1. NIFEREX [Concomitant]
     Route: 064
  2. MULTI-VITAMINS [Concomitant]
     Route: 064
  3. ALLEGRA [Concomitant]
     Route: 064
  4. PAXIL [Suspect]
     Indication: DEPRESSION
     Dosage: 20MG PER DAY
     Route: 064
     Dates: start: 19991001, end: 20031201

REACTIONS (10)
  - FAILURE TO THRIVE [None]
  - ATRIAL SEPTAL DEFECT [None]
  - CARDIAC FAILURE CONGESTIVE [None]
  - PULMONARY ARTERIAL HYPERTENSION [None]
  - VENTRICULAR SEPTAL DEFECT [None]
  - ARTERIAL DISORDER [None]
  - PATENT DUCTUS ARTERIOSUS [None]
  - PULMONARY ARTERY STENOSIS CONGENITAL [None]
  - RIGHT AORTIC ARCH [None]
  - FOETAL EXPOSURE DURING PREGNANCY [None]
